FAERS Safety Report 9093621 (Version 2)
Quarter: 2013Q1

REPORT INFORMATION
  Report Type: Spontaneous
  Country: FR (occurrence: FR)
  Receive Date: 20130218
  Receipt Date: 20130325
  Transmission Date: 20140127
  Serious: Yes (Life-Threatening, Hospitalization)
  Sender: FDA-Public Use
  Company Number: FR-ASTRAZENECA-2013SE09535

PATIENT
  Age: 2323 Week
  Sex: Male
  Weight: 85 kg

DRUGS (12)
  1. XEROQUEL [Suspect]
     Indication: SCHIZOPHRENIA
     Route: 048
     Dates: start: 20130116, end: 20130116
  2. XEROQUEL [Suspect]
     Indication: SCHIZOPHRENIA
     Route: 048
     Dates: start: 20130117, end: 20130121
  3. TERCIAN [Suspect]
     Indication: SCHIZOPHRENIA
     Dosage: 40 MG/ML , 100 TO 200 DROPS DAILY
     Route: 048
     Dates: start: 20130116, end: 20130121
  4. LEPTICUR [Suspect]
     Route: 048
     Dates: start: 20130117, end: 20130117
  5. LEPTICUR [Suspect]
     Route: 048
     Dates: start: 20130118, end: 20130121
  6. THERALENE [Suspect]
     Indication: SCHIZOPHRENIA
     Dosage: 40 MG/ML 30 DROPS BEFORE GOING TO BED
     Route: 048
     Dates: start: 20130117
  7. NUCTALON [Concomitant]
  8. VALIUM [Concomitant]
     Indication: AGITATION
     Dosage: 10 MG/2 ML IV.
     Route: 042
  9. NORMACOL [Concomitant]
     Dates: start: 20130117
  10. SULFARLEM S 25 [Concomitant]
     Dates: start: 20130118
  11. DIHYDROERGOTAMINE [Concomitant]
     Route: 048
     Dates: start: 20130121
  12. XANAX [Concomitant]
     Route: 048
     Dates: start: 20130116, end: 20130117

REACTIONS (4)
  - Colitis ischaemic [Recovered/Resolved with Sequelae]
  - Gastrointestinal necrosis [Recovered/Resolved with Sequelae]
  - Shock [Recovered/Resolved with Sequelae]
  - Intestinal obstruction [Recovered/Resolved with Sequelae]
